FAERS Safety Report 18542647 (Version 3)
Quarter: 2020Q4

REPORT INFORMATION
  Report Type: Report from Study
  Country: DE (occurrence: DE)
  Receive Date: 20201124
  Receipt Date: 20201225
  Transmission Date: 20210114
  Serious: Yes (Hospitalization)
  Sender: FDA-Public Use
  Company Number: DE-TAKEDA-2020TUS050104

PATIENT
  Age: 30 Year
  Sex: Male

DRUGS (15)
  1. TEDUGLUTIDE [Suspect]
     Active Substance: TEDUGLUTIDE
     Dosage: 2.6 MILLIGRAM (0.05 MG/KG, 7 TED DOSES PER WEEK)
     Route: 065
     Dates: start: 20200805
  2. TEDUGLUTIDE [Suspect]
     Active Substance: TEDUGLUTIDE
     Indication: SHORT-BOWEL SYNDROME
     Dosage: 2.4 MILLIGRAM (0.05 MG/KG, 7 TED DOSES PER WEEK)
     Route: 065
     Dates: start: 20160725, end: 20170228
  3. TEDUGLUTIDE [Suspect]
     Active Substance: TEDUGLUTIDE
     Dosage: 2.6 MILLIGRAM (0.05 MG/KG, 7 TED DOSES PER WEEK)
     Route: 065
     Dates: start: 20200805
  4. TEDUGLUTIDE [Suspect]
     Active Substance: TEDUGLUTIDE
     Dosage: 2.6 MILLIGRAM (0.05 MG/KG, 7 TED DOSES PER WEEK)
     Route: 065
     Dates: start: 20200805
  5. TEDUGLUTIDE [Suspect]
     Active Substance: TEDUGLUTIDE
     Dosage: 2.6 MILLIGRAM (0.05 MG/KG, 7 TED DOSES PER WEEK)
     Route: 065
     Dates: start: 20200805
  6. TEDUGLUTIDE [Suspect]
     Active Substance: TEDUGLUTIDE
     Dosage: 2.4 MILLIGRAM (0.05 MG/KG, 3 TED DOSES PER WEEK)
     Route: 065
     Dates: start: 20170301, end: 20170602
  7. LEVOMETHADONE [Concomitant]
     Active Substance: LEVOMETHADONE
     Indication: PAIN
     Dosage: 5 MILLIGRAM, TID
     Route: 048
     Dates: start: 2020
  8. TEDUGLUTIDE [Suspect]
     Active Substance: TEDUGLUTIDE
     Indication: SHORT-BOWEL SYNDROME
     Dosage: 2.4 MILLIGRAM (0.05 MG/KG, 7 TED DOSES PER WEEK)
     Route: 065
     Dates: start: 20160725, end: 20170228
  9. TEDUGLUTIDE [Suspect]
     Active Substance: TEDUGLUTIDE
     Dosage: 2.4 MILLIGRAM (0.05 MG/KG, 3 TED DOSES PER WEEK)
     Route: 065
     Dates: start: 20170301, end: 20170602
  10. TEDUGLUTIDE [Suspect]
     Active Substance: TEDUGLUTIDE
     Indication: SHORT-BOWEL SYNDROME
     Dosage: 2.4 MILLIGRAM (0.05 MG/KG, 7 TED DOSES PER WEEK)
     Route: 065
     Dates: start: 20160725, end: 20170228
  11. TEDUGLUTIDE [Suspect]
     Active Substance: TEDUGLUTIDE
     Dosage: 2.4 MILLIGRAM (0.05 MG/KG, 3 TED DOSES PER WEEK)
     Route: 065
     Dates: start: 20170301, end: 20170602
  12. VITAMIN B12 [Concomitant]
     Active Substance: CYANOCOBALAMIN
     Indication: PRODUCT USED FOR UNKNOWN INDICATION
     Dosage: 999 (NO UNITS), MONTHLY
     Route: 058
  13. TEDUGLUTIDE [Suspect]
     Active Substance: TEDUGLUTIDE
     Indication: SHORT-BOWEL SYNDROME
     Dosage: 2.4 MILLIGRAM (0.05 MG/KG, 7 TED DOSES PER WEEK)
     Route: 065
     Dates: start: 20160725, end: 20170228
  14. TEDUGLUTIDE [Suspect]
     Active Substance: TEDUGLUTIDE
     Dosage: 2.4 MILLIGRAM (0.05 MG/KG, 3 TED DOSES PER WEEK)
     Route: 065
     Dates: start: 20170301, end: 20170602
  15. FERINJECT [Concomitant]
     Active Substance: FERRIC CARBOXYMALTOSE
     Indication: PRODUCT USED FOR UNKNOWN INDICATION
     Dosage: 999 MILLIGRAM
     Route: 042

REACTIONS (4)
  - Fistula of small intestine [Recovered/Resolved]
  - Tooth fracture [Not Recovered/Not Resolved]
  - Anastomotic leak [Recovered/Resolved]
  - Device related sepsis [Recovered/Resolved]

NARRATIVE: CASE EVENT DATE: 2020
